FAERS Safety Report 7048840-7 (Version None)
Quarter: 2010Q4

REPORT INFORMATION
  Report Type: 
  Country: None (occurrence: None)
  Receive Date: 20101018
  Receipt Date: 20101007
  Transmission Date: 20110411
  Serious: No
  Sender: FDA-Public Use
  Company Number: US-ROXANE LABORATORIES, INC.-2010-RO-01353RO

PATIENT
  Sex: Female
  Weight: 60 kg

DRUGS (2)
  1. ROXICET [Suspect]
     Indication: BACK PAIN
     Route: 048
     Dates: start: 20100920, end: 20100930
  2. FENTANYL [Suspect]
     Indication: BACK PAIN
     Route: 062
     Dates: start: 20100920, end: 20100921

REACTIONS (6)
  - ANXIETY DISORDER [None]
  - DYSPNOEA [None]
  - GENERALISED ERYTHEMA [None]
  - NERVOUSNESS [None]
  - PRURITUS GENERALISED [None]
  - STRESS [None]
